FAERS Safety Report 6283634-1 (Version None)
Quarter: 2009Q3

REPORT INFORMATION
  Report Type: 
  Country: None (occurrence: None)
  Receive Date: 20090724
  Receipt Date: 20090716
  Transmission Date: 20100115
  Serious: Yes (Hospitalization, Other)
  Sender: FDA-Public Use
  Company Number: PHHY2009BR29472

PATIENT
  Sex: Female
  Weight: 69 kg

DRUGS (3)
  1. EXELON [Suspect]
     Indication: DEMENTIA ALZHEIMER'S TYPE
     Dosage: 3MG
     Route: 048
     Dates: start: 20080101
  2. EXELON [Suspect]
     Dosage: 3MG 2 CAPSULES DAILY
     Dates: start: 20090601
  3. EXELON [Suspect]

REACTIONS (4)
  - CONFUSIONAL STATE [None]
  - LIMB DISCOMFORT [None]
  - THERAPY CESSATION [None]
  - VENOUS OCCLUSION [None]
